FAERS Safety Report 18840046 (Version 2)
Quarter: 2021Q2

REPORT INFORMATION
  Report Type: Report from Study
  Country: CA (occurrence: CA)
  Receive Date: 20210203
  Receipt Date: 20210412
  Transmission Date: 20210717
  Serious: Yes (Hospitalization, Other)
  Sender: FDA-Public Use
  Company Number: CA-MYLANLABS-2021M1006368

PATIENT
  Age: 62 Year
  Sex: Female

DRUGS (1)
  1. CLOZAPINE. [Suspect]
     Active Substance: CLOZAPINE
     Indication: PRODUCT USED FOR UNKNOWN INDICATION
     Dosage: UNK
     Dates: start: 20151203, end: 202101

REACTIONS (5)
  - Granulocytopenia [Unknown]
  - Cholecystitis acute [Unknown]
  - Pneumonia [Unknown]
  - Septic shock [Unknown]
  - Sedation [Unknown]

NARRATIVE: CASE EVENT DATE: 20210127
